FAERS Safety Report 9803241 (Version 2)
Quarter: 2014Q1

REPORT INFORMATION
  Report Type: Spontaneous
  Country: DE (occurrence: DE)
  Receive Date: 20140108
  Receipt Date: 20140129
  Transmission Date: 20141002
  Serious: Yes (Other)
  Sender: FDA-Public Use
  Company Number: DE-009507513-1401DEU000565

PATIENT
  Sex: Female
  Weight: 62 kg

DRUGS (1)
  1. NUVARING [Suspect]
     Dosage: UNK
     Route: 067
     Dates: start: 201212

REACTIONS (4)
  - Monoplegia [Unknown]
  - Pain in extremity [Unknown]
  - Infection [Unknown]
  - Adverse event [Unknown]
